FAERS Safety Report 16923122 (Version 1)
Quarter: 2019Q4

REPORT INFORMATION
  Report Type: Spontaneous
  Country: ES (occurrence: ES)
  Receive Date: 20191016
  Receipt Date: 20191016
  Transmission Date: 20200122
  Serious: Yes (Disabling, Other)
  Sender: FDA-Public Use
  Company Number: ES-TEVA-2019-ES-1121096

PATIENT
  Age: 79 Year
  Sex: Female

DRUGS (1)
  1. COPAXONE [Suspect]
     Active Substance: GLATIRAMER ACETATE
     Indication: BRAIN NEOPLASM
     Route: 058
     Dates: start: 20191003

REACTIONS (3)
  - Gait inability [Unknown]
  - Off label use [Unknown]
  - Noninfective encephalitis [Unknown]

NARRATIVE: CASE EVENT DATE: 20191003
